FAERS Safety Report 14230093 (Version 2)
Quarter: 2020Q3

REPORT INFORMATION
  Report Type: Report from Study
  Country: IT (occurrence: IT)
  Receive Date: 20171128
  Receipt Date: 20171205
  Transmission Date: 20201104
  Serious: Yes (Hospitalization)
  Sender: FDA-Public Use
  Company Number: IT-JNJFOC-20171126359

PATIENT
  Age: 79 Year
  Sex: Female

DRUGS (5)
  1. PLD [Suspect]
     Active Substance: DOXORUBICIN HYDROCHLORIDE
     Route: 042
  2. PLD [Suspect]
     Active Substance: DOXORUBICIN HYDROCHLORIDE
     Indication: OVARIAN CANCER
     Dosage: INTENDED DOSE 30, ADMINISTERED DOSE 30??CYCLE 5
     Route: 042
     Dates: start: 20170803
  3. TRABECTEDIN [Suspect]
     Active Substance: TRABECTEDIN
     Route: 042
  4. BENADON [Concomitant]
     Active Substance: PYRIDOXINE HYDROCHLORIDE
     Indication: SKIN TOXICITY
     Dosage: DAILY DOSE 300 (UNITS UNSPECIFIED)
     Route: 048
     Dates: start: 20170803
  5. TRABECTEDIN [Suspect]
     Active Substance: TRABECTEDIN
     Indication: OVARIAN CANCER
     Dosage: INTENDED DOSE 1.10, ADMINISTERED DOSE 1.10 (UNITS UNSPECIFIED)CYCLE 5
     Route: 042
     Dates: start: 20170803

REACTIONS (1)
  - Febrile neutropenia [Recovered/Resolved]

NARRATIVE: CASE EVENT DATE: 20171120
